FAERS Safety Report 7625392-1 (Version None)
Quarter: 2011Q3

REPORT INFORMATION
  Report Type: 
  Country: None (occurrence: None)
  Receive Date: 20110721
  Receipt Date: 20110711
  Transmission Date: 20111222
  Serious: Yes (Other)
  Sender: FDA-Public Use
  Company Number: US-BAYER-201032557NA

PATIENT
  Age: 25 Year
  Sex: Female
  Weight: 117.91 kg

DRUGS (11)
  1. CHANTIX [Concomitant]
     Dosage: 1 MG, UNK
     Dates: start: 20100110
  2. RANITIDINE [Concomitant]
     Dosage: 150 MG, UNK
     Dates: start: 20100208
  3. AMITRIPTYLINE HCL [Concomitant]
     Dosage: 25 MG, UNK
     Dates: start: 20100225, end: 20100329
  4. PERCOCET [Concomitant]
     Indication: PAIN
     Dosage: UNK
     Dates: start: 20100317
  5. YASMIN [Suspect]
     Dosage: UNK
     Route: 048
     Dates: start: 20091101, end: 20100701
  6. ELMIRON [Concomitant]
     Dosage: 100 MG, UNK
     Dates: start: 20100302
  7. CHANTIX [Concomitant]
     Dosage: 0.5 MG, UNK
     Dates: start: 20100101
  8. HYDROCODONE BITARTRATE AND ACETAMINOPHEN [Concomitant]
     Dosage: 500 MG, UNK
     Dates: start: 20100101, end: 20100315
  9. LOPERAMIDE [Concomitant]
     Dosage: 2 MG, UNK
     Dates: start: 20100208
  10. HYDROXYZINE HCL [Concomitant]
     Dosage: 25 MG, UNK
     Dates: start: 20100301
  11. AMOXICILLIN AND CLAVULANATE POTASSIUM [Concomitant]
     Dosage: UNK
     Dates: start: 20100105

REACTIONS (6)
  - DEPRESSION [None]
  - INFLAMMATION [None]
  - MENTAL DISORDER [None]
  - GALLBLADDER DISORDER [None]
  - CHOLECYSTITIS CHRONIC [None]
  - PAIN [None]
